FAERS Safety Report 24926972 (Version 3)
Quarter: 2025Q1

REPORT INFORMATION
  Report Type: Report from Study
  Country: HU (occurrence: HU)
  Receive Date: 20250205
  Receipt Date: 20250217
  Transmission Date: 20250409
  Serious: Yes (Life-Threatening, Hospitalization, Other)
  Sender: BIOVITRUM
  Company Number: HU-AstraZeneca-CH-00797939A

PATIENT
  Sex: Male
  Weight: 2.1 kg

DRUGS (1)
  1. PALIVIZUMAB [Suspect]
     Active Substance: PALIVIZUMAB
     Indication: Respiratory syncytial virus immunisation
     Route: 030

REACTIONS (9)
  - Respiratory syncytial virus test positive [Unknown]
  - Pneumonia [Not Recovered/Not Resolved]
  - Bronchiolitis [Unknown]
  - Respiratory failure [Unknown]
  - Circulatory collapse [Unknown]
  - Acinetobacter sepsis [Unknown]
  - Jugular vein thrombosis [Unknown]
  - Anaemia [Unknown]
  - Thrombocytopenia [Unknown]

NARRATIVE: CASE EVENT DATE: 20250101
